FAERS Safety Report 7444677-5 (Version None)
Quarter: 2011Q2

REPORT INFORMATION
  Report Type: 
  Country: None (occurrence: None)
  Receive Date: 20110429
  Receipt Date: 20110419
  Transmission Date: 20111010
  Serious: Yes (Hospitalization)
  Sender: FDA-Public Use
  Company Number: CH-NOVOPROD-324624

PATIENT
  Age: 65 Year
  Sex: Female
  Weight: 81 kg

DRUGS (3)
  1. ACTOPLUS MET [Concomitant]
     Dosage: 2 X 850MG/15MG PER DAY
     Route: 048
     Dates: start: 20101021, end: 20110220
  2. DIAMICRON [Concomitant]
     Dosage: 120 MG, QD
     Route: 048
     Dates: start: 20090814, end: 20110220
  3. VICTOZA [Suspect]
     Indication: TYPE 2 DIABETES MELLITUS
     Dosage: 1.2 MG, QD
     Route: 058
     Dates: start: 20100316, end: 20110220

REACTIONS (2)
  - LIPASE INCREASED [None]
  - PANCREATITIS ACUTE [None]
